FAERS Safety Report 5573998-6 (Version None)
Quarter: 2007Q4

REPORT INFORMATION
  Report Type: 
  Country: None (occurrence: None)
  Receive Date: 20071226
  Receipt Date: 20071218
  Transmission Date: 20080405
  Serious: Yes (Death, Disabling)
  Sender: FDA-Public Use
  Company Number: FR-MERCK-0712FRA00076

PATIENT
  Age: 79 Year
  Sex: Female

DRUGS (1)
  1. FOSAMAX [Suspect]
     Indication: OSTEOARTHRITIS
     Route: 048

REACTIONS (2)
  - DEATH [None]
  - OSTEONECROSIS [None]
